FAERS Safety Report 25815714 (Version 2)
Quarter: 2025Q3

REPORT INFORMATION
  Report Type: Spontaneous
  Country: EU (occurrence: EU)
  Receive Date: 20250918
  Receipt Date: 20250929
  Transmission Date: 20251020
  Serious: Yes (Other)
  Sender: ALK-ABELLO
  Company Number: EU-ALK-ABELLO A/S-2025AA003055

PATIENT

DRUGS (2)
  1. BETULA PENDULA POLLEN [Suspect]
     Active Substance: BETULA PENDULA POLLEN
     Indication: Product used for unknown indication
     Dates: start: 202212, end: 202509
  2. ACARIZAX [Suspect]
     Active Substance: DERMATOPHAGOIDES FARINAE\DERMATOPHAGOIDES PTERONYSSINUS
     Indication: Product used for unknown indication
     Dates: start: 202302, end: 202509

REACTIONS (1)
  - Graves^ disease [Unknown]

NARRATIVE: CASE EVENT DATE: 20250101
